APPROVED DRUG PRODUCT: ETHACRYNATE SODIUM
Active Ingredient: ETHACRYNATE SODIUM
Strength: EQ 50MG BASE/VIAL
Dosage Form/Route: INJECTABLE;INJECTION
Application: A205473 | Product #001 | TE Code: AP
Applicant: PH HEALTH LTD
Approved: Jul 29, 2015 | RLD: No | RS: No | Type: RX